FAERS Safety Report 7389078-3 (Version None)
Quarter: 2011Q2

REPORT INFORMATION
  Report Type: 
  Country: None (occurrence: None)
  Receive Date: 20110401
  Receipt Date: 20110329
  Transmission Date: 20111010
  Serious: Yes (Hospitalization)
  Sender: FDA-Public Use
  Company Number: FR-ROCHE-748836

PATIENT
  Age: 76 Year
  Sex: Female

DRUGS (16)
  1. KARDEGIC [Concomitant]
     Route: 048
  2. VOGALENE LYOC [Suspect]
     Dosage: FORM: ORAL LYOPHILISAT
     Route: 048
     Dates: start: 20100915
  3. TANGANIL [Suspect]
     Route: 048
     Dates: start: 20100915
  4. LEVOTHYROX [Concomitant]
     Dosage: DIVISIBLE TABLET
  5. REPAGLINIDE [Suspect]
     Route: 048
  6. ZOLPIDEM [Concomitant]
     Route: 048
  7. ROCEPHIN [Suspect]
     Dosage: FORM: POWDER FOR INJECTABLE SOLUTION
     Route: 065
     Dates: start: 20101021
  8. TOPALGIC LP [Suspect]
     Dosage: PROLONGED RELEASE TABLET
     Route: 048
  9. FORLAX [Concomitant]
  10. LANTUS [Concomitant]
  11. PARACETAMOL [Concomitant]
  12. FOZITEC [Suspect]
     Route: 048
  13. ZYLORIC [Suspect]
     Route: 048
  14. BETASERC [Suspect]
     Route: 048
     Dates: start: 20100915
  15. VASTAREL [Suspect]
     Dosage: FORM: MODIFIED RELEASE COATED TABLET
     Route: 048
  16. DICLOFENAC SODIUM [Concomitant]
     Route: 061

REACTIONS (1)
  - DRUG RASH WITH EOSINOPHILIA AND SYSTEMIC SYMPTOMS [None]
